FAERS Safety Report 8172512-9 (Version None)
Quarter: 2012Q1

REPORT INFORMATION
  Report Type: 
  Country: None (occurrence: None)
  Receive Date: 20120227
  Receipt Date: 20120227
  Transmission Date: 20120608
  Serious: Yes (Hospitalization)
  Sender: FDA-Public Use
  Company Number: None

PATIENT
  Age: 56 Year
  Sex: Female
  Weight: 86.6 kg

DRUGS (3)
  1. PROPYLTHIOURACIL [Suspect]
     Indication: HYPERTHYROIDISM
     Dosage: 1200MG/DAY PO
     Route: 048
     Dates: end: 20100106
  2. METOPROLOL SUCCINATE [Concomitant]
  3. ZOLPIDEM TARTRATE (AMBIEN CR) [Concomitant]

REACTIONS (6)
  - FATIGUE [None]
  - ACUTE HEPATIC FAILURE [None]
  - HYPERTENSION [None]
  - SLEEP DISORDER [None]
  - HEPATOTOXICITY [None]
  - THROMBOCYTOPENIA [None]
